FAERS Safety Report 20957260 (Version 1)
Quarter: 2022Q2

REPORT INFORMATION
  Report Type: Spontaneous
  Country: US (occurrence: None)
  Receive Date: 20220614
  Receipt Date: 20220614
  Transmission Date: 20220721
  Serious: No
  Sender: FDA-Public Use
  Company Number: None

PATIENT
  Age: 86 Year
  Sex: Female

DRUGS (1)
  1. PAXLOVID [Suspect]
     Active Substance: NIRMATRELVIR\RITONAVIR

REACTIONS (7)
  - COVID-19 [None]
  - SARS-CoV-2 test positive [None]
  - Cough [None]
  - Rhinorrhoea [None]
  - Sneezing [None]
  - Fatigue [None]
  - Diarrhoea [None]
